FAERS Safety Report 21614236 (Version 2)
Quarter: 2022Q4

REPORT INFORMATION
  Report Type: Report from Study
  Country: US (occurrence: US)
  Receive Date: 20221118
  Receipt Date: 20221224
  Transmission Date: 20230112
  Serious: No
  Sender: FDA-Public Use
  Company Number: US-002147023-NVSC2022US260056

PATIENT
  Sex: Female

DRUGS (1)
  1. TABRECTA [Suspect]
     Active Substance: CAPMATINIB
     Indication: Lung neoplasm malignant
     Dosage: UNK UNK, BID
     Route: 048
     Dates: start: 202210

REACTIONS (4)
  - Pain [Unknown]
  - Pollakiuria [Unknown]
  - Pyrexia [Unknown]
  - Fatigue [Unknown]
